FAERS Safety Report 24164481 (Version 2)
Quarter: 2025Q3

REPORT INFORMATION
  Report Type: Spontaneous
  Country: EU (occurrence: EU)
  Receive Date: 20240801
  Receipt Date: 20250822
  Transmission Date: 20251020
  Serious: Yes (Life-Threatening, Hospitalization)
  Sender: TEVA
  Company Number: EU-TEVA-VS-3226180

PATIENT
  Age: 80 Year
  Sex: Female

DRUGS (1)
  1. FENTANYL [Suspect]
     Active Substance: FENTANYL
     Indication: Rheumatoid arthritis
     Route: 062

REACTIONS (12)
  - Toxicity to various agents [Unknown]
  - Dehydration [Unknown]
  - Arrhythmia [Unknown]
  - Fatigue [Unknown]
  - Bradykinesia [Unknown]
  - Apnoea [Unknown]
  - Accidental overdose [Unknown]
  - Gait disturbance [Unknown]
  - Loss of consciousness [Unknown]
  - Disturbance in attention [Unknown]
  - Miosis [Unknown]
  - Hypoxia [Unknown]
